FAERS Safety Report 5025919-2 (Version None)
Quarter: 2006Q2

REPORT INFORMATION
  Report Type: 
  Country: None (occurrence: None)
  Receive Date: 20060614
  Receipt Date: 20060609
  Transmission Date: 20061013
  Serious: Yes (Disabling, Other)
  Sender: FDA-Public Use
  Company Number: CA-GLAXOSMITHKLINE-A0608675A

PATIENT
  Age: 65 Year
  Sex: Female
  Weight: 126.4 kg

DRUGS (9)
  1. AVANDIA [Suspect]
     Dosage: 4MG PER DAY
     Route: 048
     Dates: end: 20051201
  2. GLYBURIDE [Concomitant]
     Dosage: 5MG TWICE PER DAY
  3. CARDIZEM [Concomitant]
     Dosage: 360MG PER DAY
  4. PREDNISONE [Concomitant]
     Dosage: 5MG ALTERNATE DAYS
  5. METHOTREXATE [Concomitant]
     Dosage: 15MG WEEKLY
  6. SULFASALAZINE [Concomitant]
     Dosage: 100MG TWICE PER DAY
  7. PRAVACHOL [Concomitant]
     Dosage: 20MG PER DAY
  8. PLAQUENIL [Concomitant]
     Dosage: 200MG TWICE PER DAY
  9. EVISTA [Concomitant]
     Dosage: 1TAB PER DAY
     Route: 048

REACTIONS (10)
  - ABDOMINAL DISTENSION [None]
  - ANAEMIA MACROCYTIC [None]
  - BLOOD ALBUMIN DECREASED [None]
  - DISCOMFORT [None]
  - DYSPNOEA [None]
  - GLYCOSURIA [None]
  - HYPOAESTHESIA [None]
  - OEDEMA PERIPHERAL [None]
  - PROTEINURIA [None]
  - WEIGHT INCREASED [None]
